FAERS Safety Report 25582846 (Version 1)
Quarter: 2025Q3

REPORT INFORMATION
  Report Type: Other
  Country: US (occurrence: US)
  Receive Date: 20250720
  Receipt Date: 20250720
  Transmission Date: 20251021
  Serious: Yes (Other)
  Sender: HLS THERAPEUTICS
  Company Number: US-HLS-202500276

PATIENT
  Age: 50 Year
  Sex: Male

DRUGS (2)
  1. CLOZAPINE [Suspect]
     Active Substance: CLOZAPINE
     Route: 065
  2. CLOZAPINE [Suspect]
     Active Substance: CLOZAPINE
     Route: 065

REACTIONS (5)
  - Withdrawal catatonia [Recovering/Resolving]
  - Chronic obstructive pulmonary disease [Unknown]
  - Treatment noncompliance [Unknown]
  - Pneumonia [Unknown]
  - Pulmonary embolism [Unknown]
